FAERS Safety Report 5649462-2 (Version None)
Quarter: 2008Q1

REPORT INFORMATION
  Report Type: 
  Country: None (occurrence: None)
  Receive Date: 20080131
  Receipt Date: 20071218
  Transmission Date: 20080703
  Serious: No
  Sender: FDA-Public Use
  Company Number: US200712003946

PATIENT
  Age: 66 Year
  Sex: Female

DRUGS (6)
  1. BYETTA [Suspect]
     Indication: TYPE 2 DIABETES MELLITUS
     Dosage: 5 UG, 2/D, SUBCUTANEOUS
     Route: 058
     Dates: start: 20071201
  2. EXENATIDE PEN, DISPOSABLE DEVICE (EXENATIDE PEN) [Concomitant]
  3. METFORMIN HCL [Concomitant]
  4. GLUCOTROL [Concomitant]
  5. AVANDIA [Concomitant]
  6. BENICAR [Concomitant]

REACTIONS (1)
  - VITREOUS FLOATERS [None]
